FAERS Safety Report 4389099-9 (Version None)
Quarter: 2004Q2

REPORT INFORMATION
  Report Type: 
  Country: None (occurrence: None)
  Receive Date: 20040628
  Receipt Date: 20040616
  Transmission Date: 20050107
  Serious: Yes (Other)
  Sender: FDA-Public Use
  Company Number: 0104-1702

PATIENT
  Age: 37 Year
  Sex: Male
  Weight: 97.5234 kg

DRUGS (4)
  1. ADVICOR [Suspect]
     Indication: HIGH DENSITY LIPOPROTEIN DECREASED
     Dosage: 1 TABLET(S) QHS PO
     Route: 048
     Dates: start: 20040614, end: 20040615
  2. ADVICOR [Suspect]
     Indication: LOW DENSITY LIPOPROTEIN INCREASED
     Dosage: 1 TABLET(S) QHS PO
     Route: 048
     Dates: start: 20040614, end: 20040615
  3. CELEBREX [Concomitant]
  4. LIQUID [Concomitant]

REACTIONS (1)
  - HYPERSENSITIVITY [None]
